FAERS Safety Report 8842195 (Version 1)
Quarter: 2012Q4

REPORT INFORMATION
  Report Type: Spontaneous
  Country: US (occurrence: None)
  Receive Date: 20121015
  Receipt Date: 20121015
  Transmission Date: 20130627
  Serious: Yes (Hospitalization)
  Sender: FDA-Public Use
  Company Number: None

PATIENT
  Age: 61 Year
  Weight: 96.1 kg

DRUGS (11)
  1. UNSPECIFIED [Suspect]
     Indication: GLIOBLASTOMA MULTIFORME
     Dosage: 50BSA/M2 = 100 mg weekly IV
     Route: 042
     Dates: start: 20120924, end: 20121001
  2. AMLODIPINE [Concomitant]
  3. DEXAMETHASONE [Concomitant]
  4. DOCUSATE [Concomitant]
  5. LEVETIRACETAM [Concomitant]
  6. OMEPRAZOLE [Concomitant]
  7. PHENYTOIN [Concomitant]
  8. PSYLLIUM (SUGAR FREE) [Concomitant]
  9. SENNA [Concomitant]
  10. VALSARTAN [Concomitant]
  11. ACETAMINOPHEN [Concomitant]

REACTIONS (12)
  - Hemiparesis [None]
  - Condition aggravated [None]
  - Nodule [None]
  - Cerebral disorder [None]
  - Disease progression [None]
  - Vision blurred [None]
  - Dyspnoea [None]
  - Brain oedema [None]
  - Anxiety [None]
  - Refusal of treatment by patient [None]
  - Fatigue [None]
  - Lethargy [None]
